FAERS Safety Report 23518436 (Version 5)
Quarter: 2025Q4

REPORT INFORMATION
  Report Type: Report from Study
  Country: US (occurrence: None)
  Receive Date: 20240213
  Receipt Date: 20251125
  Transmission Date: 20260117
  Serious: Yes (Other)
  Sender: UCB
  Company Number: US-UCBSA-2024005253

PATIENT
  Age: 9 Year
  Weight: 34.8 kg

DRUGS (3)
  1. FENFLURAMINE [Suspect]
     Active Substance: FENFLURAMINE
     Indication: Lennox-Gastaut syndrome
     Dosage: 6 MILLILITER, 2X/DAY (BID) (0.61 MG/KG/DAY (TOTAL DOSE 26.4 MG/DAY))
  2. FENFLURAMINE [Suspect]
     Active Substance: FENFLURAMINE
     Dosage: 0.7 MG/KG/DAY (26.7 MG/DAY)
  3. FENFLURAMINE [Suspect]
     Active Substance: FENFLURAMINE
     Dosage: 0.6 MG/KG/DAY TO A TOTAL OF 26.4 MG/DAY

REACTIONS (1)
  - Tricuspid valve incompetence [Not Recovered/Not Resolved]
